FAERS Safety Report 18026255 (Version 1)
Quarter: 2020Q3

REPORT INFORMATION
  Report Type: Spontaneous
  Country: JP (occurrence: JP)
  Receive Date: 20200715
  Receipt Date: 20200715
  Transmission Date: 20201103
  Serious: Yes (Hospitalization, Other)
  Sender: FDA-Public Use
  Company Number: JP-DSJP-DSJ-2020-119706

PATIENT

DRUGS (1)
  1. OLMETEC OD [Suspect]
     Active Substance: OLMESARTAN MEDOXOMIL
     Indication: HYPERTENSION
     Dosage: 10MG/DAY
     Route: 048

REACTIONS (3)
  - Aortic valve replacement [Recovering/Resolving]
  - Sleep apnoea syndrome [Recovering/Resolving]
  - Aortic valve incompetence [Recovering/Resolving]
